FAERS Safety Report 9553532 (Version 1)
Quarter: 2013Q3

REPORT INFORMATION
  Report Type: Spontaneous
  Country: IT (occurrence: None)
  Receive Date: 20130923
  Receipt Date: 20130923
  Transmission Date: 20140515
  Serious: Yes (Hospitalization)
  Sender: FDA-Public Use
  Company Number: MIN-00937

PATIENT
  Age: 54 Year
  Sex: Male

DRUGS (6)
  1. MINOCYCLINE [Suspect]
     Indication: BORDERLINE LEPROSY
  2. MINOCYCLINE [Suspect]
     Indication: TYPE 2 LEPRA REACTION
  3. PREDNISONE [Suspect]
     Indication: LEPROSY
  4. RIFAMPICIN [Concomitant]
  5. MOXIFLOXACIN [Concomitant]
  6. THALIDOMIDE [Concomitant]

REACTIONS (4)
  - Cellulitis [None]
  - Nocardiosis [None]
  - Diabetes mellitus [None]
  - Haemoglobin decreased [None]
